FAERS Safety Report 10970262 (Version 1)
Quarter: 2015Q1

REPORT INFORMATION
  Report Type: Spontaneous
  Country: US (occurrence: None)
  Receive Date: 20150330
  Receipt Date: 20150330
  Transmission Date: 20150721
  Serious: Yes (Other)
  Sender: FDA-Public Use
  Company Number: None

PATIENT
  Age: 71 Year
  Sex: Female
  Weight: 72.58 kg

DRUGS (15)
  1. CELECOXIB. [Suspect]
     Active Substance: CELECOXIB
     Indication: ARTHRITIS
     Route: 048
     Dates: start: 20150303, end: 20150329
  2. LOVASTATIN. [Concomitant]
     Active Substance: LOVASTATIN
  3. ZOLPIDEM [Concomitant]
     Active Substance: ZOLPIDEM\ZOLPIDEM TARTRATE
  4. PRILOSEC [Concomitant]
     Active Substance: OMEPRAZOLE MAGNESIUM
  5. TYLENOL [Concomitant]
     Active Substance: ACETAMINOPHEN
  6. OSCAL [Concomitant]
     Active Substance: CALCIUM CARBONATE
  7. CENTRUM SILVER [Concomitant]
     Active Substance: VITAMINS
  8. VITAMIN C [Concomitant]
     Active Substance: ASCORBIC ACID
  9. FISH OIL [Concomitant]
     Active Substance: FISH OIL
  10. GEMFIBROZIL. [Concomitant]
     Active Substance: GEMFIBROZIL
  11. VICODEN [Concomitant]
  12. LYRICA [Concomitant]
     Active Substance: PREGABALIN
  13. METFORMIN [Concomitant]
     Active Substance: METFORMIN HYDROCHLORIDE
  14. SCHIFF MOVE FREE [Concomitant]
     Active Substance: CHONDROITIN SULFATE A\GLUCOSAMINE
  15. CELECOBIX [Concomitant]

REACTIONS (2)
  - Joint lock [None]
  - Arthralgia [None]

NARRATIVE: CASE EVENT DATE: 20150313
